FAERS Safety Report 9021857 (Version 1)
Quarter: 2013Q1

REPORT INFORMATION
  Report Type: Spontaneous
  Country: JP (occurrence: JP)
  Receive Date: 20130118
  Receipt Date: 20130118
  Transmission Date: 20140127
  Serious: Yes (Other)
  Sender: FDA-Public Use
  Company Number: JP-PFIZER INC-2013020881

PATIENT
  Age: 7 Decade
  Sex: Female

DRUGS (1)
  1. LYRICA [Suspect]
     Indication: POST HERPETIC NEURALGIA
     Dosage: 75 MG, 1X/DAY
     Route: 048

REACTIONS (2)
  - Dyspnoea exertional [Recovered/Resolved]
  - Hypoaesthesia [Recovered/Resolved]
